FAERS Safety Report 5510639-8 (Version None)
Quarter: 2007Q4

REPORT INFORMATION
  Report Type: 
  Country: None (occurrence: None)
  Receive Date: 20071107
  Receipt Date: 20071026
  Transmission Date: 20080405
  Serious: Yes (Other)
  Sender: FDA-Public Use
  Company Number: MEDI-0006115

PATIENT
  Age: 3 Month
  Sex: Female

DRUGS (1)
  1. SYNAGIS [Suspect]
     Dosage: INTRAMUSCULAR
     Route: 030
     Dates: start: 20071018, end: 20071018

REACTIONS (4)
  - BLISTER [None]
  - ORAL MUCOSAL BLISTERING [None]
  - URTICARIA [None]
  - WHEEZING [None]
